FAERS Safety Report 8094991 (Version 4)
Quarter: 2013Q2

REPORT INFORMATION
  Report Type: Spontaneous
  Country: US (occurrence: US)
  Receive Date: 20110817
  Receipt Date: 20130424
  Transmission Date: 20140414
  Serious: Yes (Other)
  Sender: FDA-Public Use
  Company Number: US-ASTRAZENECA-2011SE47743

PATIENT
  Age: 62 Year
  Sex: Female
  Weight: 136.5 kg

DRUGS (23)
  1. ATACAND [Suspect]
     Route: 048
  2. TOPROL XL [Suspect]
     Route: 048
  3. TOPROL XL [Suspect]
     Route: 048
     Dates: start: 20091221
  4. TOPROL XL [Suspect]
     Route: 048
  5. CRESTOR [Suspect]
     Route: 048
  6. LISINOPRIL [Suspect]
     Route: 048
  7. ASPIRIN [Suspect]
     Dosage: 1 TABLET EVERY DAY AS NEEDED
     Route: 048
  8. NAPROSYN [Concomitant]
     Dosage: WITH FOOD
     Route: 048
  9. NITROGLYCERIN [Concomitant]
     Route: 060
  10. FISH OIL [Concomitant]
     Route: 048
  11. STOOL SOFTENER [Concomitant]
     Route: 048
  12. RANEXA [Concomitant]
     Route: 048
     Dates: start: 20091120
  13. IMDUR [Concomitant]
     Route: 048
  14. PLAVIX [Concomitant]
     Route: 048
  15. LIPITOR [Concomitant]
     Route: 048
  16. ALEVE [Concomitant]
     Route: 048
  17. NITROQUICK [Concomitant]
     Dosage: 0.4, ONE AS NEEDED
     Route: 060
  18. NORVASC [Concomitant]
     Route: 048
     Dates: start: 20091110
  19. LASIX [Concomitant]
     Route: 048
     Dates: end: 20091110
  20. KLOR-CON [Concomitant]
     Route: 048
     Dates: end: 20091011
  21. MAXZIDE [Concomitant]
     Route: 048
  22. TYLENOL [Concomitant]
     Dosage: TAKE TWO TABLETS EVERY 6HRS AS NEEDED
     Route: 048
  23. CLOPIDOGREL BISULFATE [Concomitant]
     Route: 048

REACTIONS (43)
  - Myocardial infarction [Unknown]
  - Atrial fibrillation [Unknown]
  - Arteriosclerosis coronary artery [Unknown]
  - Hypokalaemia [Unknown]
  - Coronary artery disease [Unknown]
  - Essential hypertension [Unknown]
  - Chest pain [Unknown]
  - Hyperlipidaemia [Unknown]
  - Troponin increased [Unknown]
  - Thyroid disorder [Unknown]
  - Diabetes mellitus [Unknown]
  - Heart rate irregular [Unknown]
  - Oedema [Unknown]
  - Palpitations [Unknown]
  - Dyspnoea [Unknown]
  - Chest discomfort [Unknown]
  - Hyperhidrosis [Unknown]
  - Orthopnoea [Unknown]
  - Oedema peripheral [Unknown]
  - Hypotension [Unknown]
  - Chest discomfort [Unknown]
  - Cold sweat [Unknown]
  - Disorientation [Unknown]
  - Weight decreased [Unknown]
  - Angina unstable [Unknown]
  - Obesity [Unknown]
  - Cardiac disorder [Unknown]
  - Cough [Unknown]
  - Fatigue [Unknown]
  - Nausea [Unknown]
  - Asthenia [Unknown]
  - Dizziness [Unknown]
  - Carotid bruit [Unknown]
  - Cardiac murmur [Unknown]
  - Ischaemia [Unknown]
  - Stress [Unknown]
  - Pyrexia [Unknown]
  - Haemoptysis [Unknown]
  - Abnormal weight gain [Unknown]
  - Drug hypersensitivity [Unknown]
  - Impaired healing [Unknown]
  - Arthralgia [Unknown]
  - Discomfort [Unknown]
